FAERS Safety Report 19503270 (Version 1)
Quarter: 2021Q3

REPORT INFORMATION
  Report Type: Report from Study
  Country: US (occurrence: US)
  Receive Date: 20210707
  Receipt Date: 20210707
  Transmission Date: 20211014
  Serious: Yes (Hospitalization, Other)
  Sender: FDA-Public Use
  Company Number: US-BAYER-2021-113736

PATIENT
  Age: 67 Year
  Sex: Female

DRUGS (4)
  1. STIVARGA [Suspect]
     Active Substance: REGORAFENIB
     Indication: COLORECTAL CANCER
     Dosage: 80 MG DAILY FOR 21 DAYS OF 28 DAYS
     Route: 048
     Dates: start: 20210323
  2. STIVARGA [Suspect]
     Active Substance: REGORAFENIB
     Indication: COLORECTAL CANCER
     Dosage: DAILY DOSE 40 MG
     Route: 048
  3. STIVARGA [Suspect]
     Active Substance: REGORAFENIB
     Indication: COLORECTAL CANCER
     Dosage: 40 MG DAILY FOR 21 DAYS ON + 7 DAYS OFF   DAILY DOSE 40 MG
     Route: 048
     Dates: start: 20210501
  4. STIVARGA [Suspect]
     Active Substance: REGORAFENIB
     Indication: COLORECTAL CANCER
     Dosage: DAILY DOSE 80 MG
     Route: 048
     Dates: end: 20210425

REACTIONS (18)
  - Liver disorder [None]
  - Kidney infection [Not Recovered/Not Resolved]
  - Disability [None]
  - Acne [Not Recovered/Not Resolved]
  - Rash [Not Recovered/Not Resolved]
  - Off label use [Not Recovered/Not Resolved]
  - Impaired work ability [Not Recovered/Not Resolved]
  - Myalgia [Unknown]
  - Haematuria [Unknown]
  - Dry mouth [Not Recovered/Not Resolved]
  - Influenza [Not Recovered/Not Resolved]
  - Skin disorder [Not Recovered/Not Resolved]
  - Impaired work ability [Unknown]
  - Oral disorder [Not Recovered/Not Resolved]
  - Pain [Not Recovered/Not Resolved]
  - Exercise tolerance decreased [Not Recovered/Not Resolved]
  - Fatigue [Not Recovered/Not Resolved]
  - Vomiting [Unknown]

NARRATIVE: CASE EVENT DATE: 202103
